FAERS Safety Report 5592231-2 (Version None)
Quarter: 2008Q1

REPORT INFORMATION
  Report Type: 
  Country: None (occurrence: None)
  Receive Date: 20080115
  Receipt Date: 20080111
  Transmission Date: 20080703
  Serious: Yes (Life-Threatening, Hospitalization, Other)
  Sender: FDA-Public Use
  Company Number: HQWYE195424JUL07

PATIENT
  Sex: Female
  Weight: 16 kg

DRUGS (6)
  1. MYLOTARG [Suspect]
     Indication: ACUTE MYELOID LEUKAEMIA RECURRENT
     Route: 041
     Dates: start: 20061129, end: 20061129
  2. MYLOTARG [Suspect]
     Route: 041
     Dates: start: 20061215, end: 20061215
  3. ACYCLOVIR [Concomitant]
     Indication: PROPHYLAXIS
     Dosage: 1 G/WEEK
     Route: 048
     Dates: start: 20061211, end: 20070201
  4. BAKTAR [Concomitant]
     Indication: PROPHYLAXIS
     Dosage: 2 MG/WEEK
     Route: 048
     Dates: start: 20061127, end: 20070201
  5. PRODIF [Concomitant]
     Indication: PROPHYLAXIS
     Dosage: 160 MG DAILY
     Route: 042
     Dates: start: 20061122, end: 20061227
  6. PANSPORIN [Concomitant]
     Indication: PROPHYLAXIS
     Dosage: 1.5 MG DAILY
     Route: 042
     Dates: start: 20061122, end: 20061218

REACTIONS (3)
  - DISSEMINATED INTRAVASCULAR COAGULATION [None]
  - HAEMORRHAGIC DIATHESIS [None]
  - OEDEMA [None]
